FAERS Safety Report 9538933 (Version 1)
Quarter: 2013Q2

REPORT INFORMATION
  Report Type: Spontaneous
  Country: US (occurrence: None)
  Receive Date: 20130507
  Receipt Date: 20130507
  Transmission Date: 20140414
  Serious: Yes (Other)
  Sender: FDA-Public Use
  Company Number: PHEH2013US000492

PATIENT
  Age: 39 Year
  Sex: Female

DRUGS (4)
  1. AFINITOR (RAD) UNKNOWN [Suspect]
     Indication: TUBEROUS SCLEROSIS
     Route: 048
  2. AFINITOR (RAD) UNKNOWN [Suspect]
     Indication: ANGIOMYOLIPOMA
     Route: 048
  3. CELEXA (CITALOPRAM HYDROBROMIDE) [Concomitant]
  4. TOPROL (METOPROLOL SUCCINATE) [Concomitant]

REACTIONS (1)
  - Stomatitis [None]
